FAERS Safety Report 24210973 (Version 1)
Quarter: 2024Q3

REPORT INFORMATION
  Report Type: Spontaneous
  Country: CN (occurrence: CN)
  Receive Date: 20240814
  Receipt Date: 20240814
  Transmission Date: 20241017
  Serious: Yes (Other)
  Sender: BAYER
  Company Number: CN-BAYER-2024A116804

PATIENT
  Age: 55 Year
  Sex: Female

DRUGS (2)
  1. ULTRAVIST [Suspect]
     Active Substance: IOPROMIDE
     Indication: Computerised tomogram
     Dosage: 85 ML, ONCE
     Route: 042
     Dates: start: 20240809, end: 20240809
  2. ULTRAVIST [Suspect]
     Active Substance: IOPROMIDE
     Indication: Rectal cancer

REACTIONS (4)
  - Blood pressure increased [Recovering/Resolving]
  - Papule [Recovering/Resolving]
  - Ear swelling [Recovering/Resolving]
  - Respiratory rate increased [None]

NARRATIVE: CASE EVENT DATE: 20240809
